FAERS Safety Report 20864065 (Version 21)
Quarter: 2024Q4

REPORT INFORMATION
  Report Type: Report from Study
  Country: US (occurrence: US)
  Receive Date: 20220523
  Receipt Date: 20241128
  Transmission Date: 20250115
  Serious: Yes (Hospitalization, Other)
  Sender: TAKEDA
  Company Number: US-PAREXEL-2021-KAM-US003426

PATIENT
  Sex: Female
  Weight: 79 kg

DRUGS (29)
  1. GLASSIA [Suspect]
     Active Substance: .ALPHA.1-PROTEINASE INHIBITOR HUMAN
     Indication: Alpha-1 antitrypsin deficiency
     Dosage: 60 MILLIGRAM/KILOGRAM, 1/WEEK
     Dates: start: 20151102
  2. GLASSIA [Suspect]
     Active Substance: .ALPHA.1-PROTEINASE INHIBITOR HUMAN
     Dosage: UNK UNK, 1/WEEK
     Dates: start: 20151228
  3. GLASSIA [Suspect]
     Active Substance: .ALPHA.1-PROTEINASE INHIBITOR HUMAN
     Dosage: 60 MILLIGRAM/KILOGRAM, 1/WEEK
  4. EPINEPHRINE [Concomitant]
     Active Substance: EPINEPHRINE
     Dosage: UNK
  5. CYMBALTA [Concomitant]
     Active Substance: DULOXETINE HYDROCHLORIDE
     Dosage: UNK
  6. SPIRIVA [Concomitant]
     Active Substance: TIOTROPIUM BROMIDE MONOHYDRATE
     Dosage: UNK
  7. BACLOFEN [Concomitant]
     Active Substance: BACLOFEN
     Dosage: UNK
  8. VITAMIN B COMPLEX [Concomitant]
     Active Substance: CYANOCOBALAMIN\DEXPANTHENOL\NIACINAMIDE\PYRIDOXINE HYDROCHLORIDE\RIBOFLAVIN 5^-PHOSPHATE SODIUM\THIA
     Dosage: UNK
  9. SODIUM CHLORIDE [Concomitant]
     Active Substance: SODIUM CHLORIDE
     Dosage: UNK
  10. HEPARIN [Concomitant]
     Active Substance: HEPARIN SODIUM
     Dosage: UNK
  11. GABAPENTIN [Concomitant]
     Active Substance: GABAPENTIN
     Dosage: UNK
  12. GINKGO [Concomitant]
     Active Substance: GINKGO
     Dosage: UNK
  13. LIDOCAINE [Concomitant]
     Active Substance: LIDOCAINE
     Dosage: UNK
  14. ESTRING [Concomitant]
     Active Substance: ESTRADIOL
     Dosage: UNK
  15. METOPROLOL SUCCINATE [Concomitant]
     Active Substance: METOPROLOL SUCCINATE
     Dosage: UNK
  16. VITAMIN D [Concomitant]
     Active Substance: VITAMIN D NOS
     Dosage: UNK
  17. SUPER CALCIUM WITH VITAMIN D3 [Concomitant]
     Dosage: UNK
  18. PREDNISONE [Concomitant]
     Active Substance: PREDNISONE
     Dosage: UNK
  19. METFORMIN HYDROCHLORIDE [Concomitant]
     Active Substance: METFORMIN HYDROCHLORIDE
     Dosage: UNK
  20. DIPHENHYDRAMINE HYDROCHLORIDE [Concomitant]
     Active Substance: DIPHENHYDRAMINE HYDROCHLORIDE
     Dosage: UNK
  21. BIOTIN [Concomitant]
     Active Substance: BIOTIN
     Dosage: UNK
  22. SYMBICORT [Concomitant]
     Active Substance: BUDESONIDE\FORMOTEROL FUMARATE DIHYDRATE
     Dosage: UNK
  23. ASPIRIN [Concomitant]
     Active Substance: ASPIRIN
     Dosage: UNK
  24. LOVASTATIN [Concomitant]
     Active Substance: LOVASTATIN
     Dosage: UNK
  25. DIPHENHYDRAMINE [Concomitant]
     Active Substance: DIPHENHYDRAMINE
     Dosage: UNK
  26. SUPER CALCIUM [Concomitant]
     Dosage: UNK
  27. CALCIUM [Concomitant]
     Active Substance: CALCIUM
     Dosage: UNK
  28. LISINOPRIL [Concomitant]
     Active Substance: LISINOPRIL
     Dosage: UNK
  29. HYDROCHLOROTHIAZIDE [Concomitant]
     Active Substance: HYDROCHLOROTHIAZIDE
     Dosage: UNK

REACTIONS (26)
  - Cholecystitis infective [Unknown]
  - Postoperative wound infection [Unknown]
  - Sepsis [Unknown]
  - Back injury [Unknown]
  - Urinary tract infection [Unknown]
  - Blood calcium increased [Unknown]
  - Spinal cord infection [Unknown]
  - Neoplasm malignant [Unknown]
  - Pneumonia [Unknown]
  - Post procedural complication [Unknown]
  - Pneumothorax [Unknown]
  - Lung neoplasm malignant [Unknown]
  - Lung disorder [Unknown]
  - Bacterial infection [Not Recovered/Not Resolved]
  - Rubber sensitivity [Unknown]
  - Seasonal allergy [Unknown]
  - Arthropod sting [Unknown]
  - Nasopharyngitis [Unknown]
  - COVID-19 [Recovered/Resolved]
  - White blood cell count increased [Unknown]
  - Fluid retention [Unknown]
  - Localised infection [Unknown]
  - Infection [Unknown]
  - Drug hypersensitivity [Unknown]
  - Fatigue [Not Recovered/Not Resolved]
  - Cough [Unknown]
